FAERS Safety Report 12569520 (Version 1)
Quarter: 2016Q3

REPORT INFORMATION
  Report Type: Spontaneous
  Country: US (occurrence: None)
  Receive Date: 20160718
  Receipt Date: 20160718
  Transmission Date: 20161109
  Serious: No
  Sender: FDA-Public Use
  Company Number: None

PATIENT
  Age: 68 Year
  Sex: Male
  Weight: 98 kg

DRUGS (2)
  1. WARFARIN [Suspect]
     Active Substance: WARFARIN
     Indication: ATRIAL FIBRILLATION
     Route: 048
     Dates: start: 20130718, end: 20160613
  2. WARFARIN [Suspect]
     Active Substance: WARFARIN
     Indication: DEEP VEIN THROMBOSIS
     Route: 048
     Dates: start: 20130718, end: 20160613

REACTIONS (8)
  - Subdural haematoma [None]
  - Fall [None]
  - Haematoma [None]
  - Epistaxis [None]
  - Haemorrhage [None]
  - Haemorrhage intracranial [None]
  - Head injury [None]
  - Hypoglycaemia [None]

NARRATIVE: CASE EVENT DATE: 20160613
